FAERS Safety Report 21607763 (Version 1)
Quarter: 2022Q4

REPORT INFORMATION
  Report Type: Spontaneous
  Country: CN (occurrence: CN)
  Receive Date: 20221117
  Receipt Date: 20221117
  Transmission Date: 20230113
  Serious: Yes (Other)
  Sender: FDA-Public Use
  Company Number: CN-009507513-2211CHN004874

PATIENT
  Age: 7 Year
  Sex: Male

DRUGS (10)
  1. POSACONAZOLE [Suspect]
     Active Substance: POSACONAZOLE
     Indication: Gastrointestinal fungal infection
     Dosage: 20 MILLIGRAM/KILOGRAM
     Route: 048
  2. VINCRISTINE [Concomitant]
     Active Substance: VINCRISTINE
     Indication: Gastrointestinal fungal infection
     Dosage: 2 MILLIGRAM/SQ. METER
     Route: 042
  3. PREDNISONE ACETATE [Concomitant]
     Active Substance: PREDNISONE ACETATE
     Indication: Gastrointestinal fungal infection
     Dosage: 60 MILLIGRAM/SQ. METER
     Route: 048
  4. CYCLOPHOSPHAMIDE [Concomitant]
     Active Substance: CYCLOPHOSPHAMIDE
     Indication: Gastrointestinal fungal infection
     Dosage: 500 MILLIGRAM/SQ. METER, Q12H
     Route: 042
  5. DAUNORUBICIN [Concomitant]
     Active Substance: DAUNORUBICIN
     Indication: Gastrointestinal fungal infection
     Dosage: 30 MILLIGRAM/SQ. METER
     Route: 042
  6. METHOTREXATE [Concomitant]
     Active Substance: METHOTREXATE
     Indication: Gastrointestinal fungal infection
     Dosage: 15 MILLIGRAM
  7. METHOTREXATE [Concomitant]
     Active Substance: METHOTREXATE
     Dosage: 5 MILLIGRAM/SQ. METER
     Route: 042
  8. CYTARABINE [Concomitant]
     Active Substance: CYTARABINE
     Indication: Gastrointestinal fungal infection
     Dosage: 30 MILLIGRAM
  9. DEXAMETHASONE [Concomitant]
     Active Substance: DEXAMETHASONE
     Indication: Gastrointestinal fungal infection
     Dosage: 4 MILLIGRAM
  10. MEROPENEM [Concomitant]
     Active Substance: MEROPENEM
     Indication: Gastrointestinal fungal infection
     Dosage: 20 MILLIGRAM/SQ. METER, Q8H
     Route: 042

REACTIONS (2)
  - Posterior reversible encephalopathy syndrome [Recovered/Resolved]
  - Product use issue [Unknown]
